FAERS Safety Report 18538736 (Version 2)
Quarter: 2020Q4

REPORT INFORMATION
  Report Type: Spontaneous
  Country: US (occurrence: US)
  Receive Date: 20201124
  Receipt Date: 20201130
  Transmission Date: 20210114
  Serious: Yes (Other)
  Sender: FDA-Public Use
  Company Number: US-PFIZER INC-2020459014

PATIENT
  Age: 9 Month
  Sex: Female

DRUGS (3)
  1. ETOPOSIDE. [Suspect]
     Active Substance: ETOPOSIDE
     Indication: CONGENITAL RETINOBLASTOMA
     Dosage: 5 MG/KG, CYCLIC (4 CYCLICAL)
     Route: 042
  2. VINCRISTINE SULFATE. [Suspect]
     Active Substance: VINCRISTINE SULFATE
     Indication: CONGENITAL RETINOBLASTOMA
     Dosage: 0.05 MG/KG, CYCLIC (4 CYCLICAL)
     Route: 042
  3. CARBOPLATIN. [Suspect]
     Active Substance: CARBOPLATIN
     Indication: CONGENITAL RETINOBLASTOMA
     Dosage: 18.6 MG/KG, CYCLIC (4 CYCLICAL)
     Route: 042

REACTIONS (3)
  - Myelosuppression [Unknown]
  - Off label use [Unknown]
  - Infantile vomiting [Unknown]
